FAERS Safety Report 16840100 (Version 2)
Quarter: 2019Q3

REPORT INFORMATION
  Report Type: Report from Study
  Country: US (occurrence: US)
  Receive Date: 20190923
  Receipt Date: 20190924
  Transmission Date: 20191005
  Serious: Yes (Death)
  Sender: FDA-Public Use
  Company Number: US-PFIZER INC-2019401953

PATIENT

DRUGS (4)
  1. BEVACIZUMAB. [Suspect]
     Active Substance: BEVACIZUMAB
     Indication: NON-SMALL CELL LUNG CANCER METASTATIC
     Dosage: 15 MG/KG, CYCLIC (INITIAL INFUSION OVER 90 MIN) ON DAY 1) EVERY 21 DAYS FOR A TOTAL OF 6 CYCLES
     Route: 042
  2. HYDROXYCHLOROQUINE [Suspect]
     Active Substance: HYDROXYCHLOROQUINE
     Indication: NON-SMALL CELL LUNG CANCER METASTATIC
     Dosage: 200 MG, 2X/DAY (CYCLIC, ON DAYS 1-21) EVERY 21 DAYS FOR A TOTAL OF 6 CYCLES
     Route: 048
  3. CARBOPLATIN. [Suspect]
     Active Substance: CARBOPLATIN
     Indication: NON-SMALL CELL LUNG CANCER METASTATIC
     Dosage: CYCLIC (AUC = 6 INTRAVENOUSLY OVER 15-30 MIN ON DAY 1) EVERY 21 DAYS FOR A TOTAL OF 6 CYCLES
     Route: 042
  4. PACLITAXEL. [Suspect]
     Active Substance: PACLITAXEL
     Indication: NON-SMALL CELL LUNG CANCER METASTATIC
     Dosage: 200 MG/M2, CYCLIC (OVER 3 H ON DAY 1) EVERY 21 DAYS FOR A TOTAL OF 6 CYCLES
     Route: 042

REACTIONS (2)
  - Sepsis [Fatal]
  - Pancytopenia [Fatal]
